FAERS Safety Report 10262288 (Version 1)
Quarter: 2014Q2

REPORT INFORMATION
  Report Type: Spontaneous
  Country: US (occurrence: US)
  Receive Date: 20140626
  Receipt Date: 20140626
  Transmission Date: 20141212
  Serious: No
  Sender: FDA-Public Use
  Company Number: US-009507513-1406USA011095

PATIENT
  Sex: Female

DRUGS (2)
  1. NASONEX [Suspect]
     Indication: EAR DISCOMFORT
     Dosage: 2 DF, BID; TWO SPRAYS IN EACH NOSTRIL TWICE DAILY
     Route: 045
     Dates: start: 20140619
  2. NASONEX [Suspect]
     Indication: OFF LABEL USE

REACTIONS (3)
  - Prescribed overdose [Unknown]
  - Off label use [Unknown]
  - No adverse event [Unknown]
